FAERS Safety Report 6510219-1 (Version None)
Quarter: 2009Q4

REPORT INFORMATION
  Report Type: 
  Country: None (occurrence: None)
  Receive Date: 20091222
  Receipt Date: 20091215
  Transmission Date: 20100525
  Serious: Yes (Hospitalization)
  Sender: FDA-Public Use
  Company Number: NL-BRISTOL-MYERS SQUIBB COMPANY-14899363

PATIENT
  Age: 74 Year
  Sex: Female

DRUGS (7)
  1. COAPROVEL TABS [Suspect]
     Indication: HYPERTENSION
     Dosage: 5YEARS,1DOSAGEFORM=150/12.5MG
     Dates: start: 20040101
  2. AMLODIPINE [Suspect]
     Indication: HYPERTENSION
     Dosage: TABS
     Dates: start: 20091026
  3. METOPROLOL SUCCINATE [Suspect]
     Indication: HYPERTENSION
     Dosage: 4YEARS,ACTAVIS RET TABLET
     Dates: start: 20050101
  4. PAROXETINE HCL [Concomitant]
     Dates: start: 19990101
  5. PRAVASTATINE TABS [Concomitant]
     Dates: start: 20040101
  6. PERSANTINE [Concomitant]
     Dates: start: 20050101
  7. ASCAL CARDIO [Concomitant]
     Dates: start: 20000101

REACTIONS (1)
  - CIRCULATORY COLLAPSE [None]
